FAERS Safety Report 23480938 (Version 1)
Quarter: 2024Q1

REPORT INFORMATION
  Report Type: Report from Study
  Country: US (occurrence: US)
  Receive Date: 20240205
  Receipt Date: 20240205
  Transmission Date: 20240409
  Serious: Yes (Hospitalization)
  Sender: FDA-Public Use
  Company Number: US-ORG100014127-2023001033

PATIENT
  Age: 44 Year
  Sex: Female

DRUGS (17)
  1. LYSODREN [Suspect]
     Active Substance: MITOTANE
     Indication: Adrenocortical carcinoma
     Dosage: 02 TABLETS TWICE DAILY
     Route: 048
     Dates: start: 20230531, end: 2023
  2. AZITHROMYCIN TAB 250MG [Concomitant]
     Indication: Product used for unknown indication
  3. BENZONATATE CAP 100MG [Concomitant]
     Indication: Product used for unknown indication
  4. CLONAZEPAM TAB 0.5MG [Concomitant]
     Indication: Product used for unknown indication
  5. COLACE CAP 100MG [Concomitant]
     Indication: Product used for unknown indication
  6. DEXAMETHASONE [Concomitant]
     Active Substance: DEXAMETHASONE
     Indication: Product used for unknown indication
  7. ETOPOSIDE INJ 100/5ML [Concomitant]
     Indication: Product used for unknown indication
  8. FAMOTIDINE TAB 40MG [Concomitant]
     Indication: Product used for unknown indication
  9. FLUTICASONE [Concomitant]
     Active Substance: FLUTICASONE
     Indication: Product used for unknown indication
  10. HYDROCORT TAB 5MG [Concomitant]
     Indication: Product used for unknown indication
  11. IBUPROFEN [Concomitant]
     Active Substance: IBUPROFEN
     Indication: Product used for unknown indication
  12. LEXAPRO TAB 20MG [Concomitant]
     Indication: Product used for unknown indication
  13. METHYLPRED TAB 4MG [Concomitant]
     Indication: Product used for unknown indication
  14. METOPROL TAR TAB 50MG [Concomitant]
     Indication: Product used for unknown indication
  15. ONDANSETRON [Concomitant]
     Active Substance: ONDANSETRON
     Indication: Product used for unknown indication
  16. POLYETH GLYC POW 3350 NF [Concomitant]
     Indication: Product used for unknown indication
  17. PROCHLORPER TAB 5MG [Concomitant]
     Indication: Product used for unknown indication

REACTIONS (1)
  - Liver function test increased [Not Recovered/Not Resolved]

NARRATIVE: CASE EVENT DATE: 20230101
